FAERS Safety Report 15670320 (Version 2)
Quarter: 2021Q2

REPORT INFORMATION
  Report Type: Spontaneous
  Country: US (occurrence: US)
  Receive Date: 20181129
  Receipt Date: 20210409
  Transmission Date: 20210716
  Serious: Yes (Disabling)
  Sender: FDA-Public Use
  Company Number: US-TEVA-2018-US-979795

PATIENT
  Age: 56 Year
  Sex: Female
  Weight: 62.59 kg

DRUGS (4)
  1. 5?FLUOROURACIL [Concomitant]
     Active Substance: FLUOROURACIL
     Indication: BREAST CANCER FEMALE
     Dosage: 825MG, NO OF CYCLES: 03, FREQUENCY: EVERY THREE WEEKS
     Route: 065
  2. DOCETAXEL. [Suspect]
     Active Substance: DOCETAXEL
     Indication: BREAST CANCER FEMALE
     Dosage: DOSAGE: 164MG, NUMBER OF CYCLE ? 03, FREQUENCY ? EVERY THREE WEEKS
     Route: 065
     Dates: start: 20130927, end: 20131111
  3. CYCLOPHOSPHAMIDE. [Concomitant]
     Active Substance: CYCLOPHOSPHAMIDE
     Indication: BREAST CANCER FEMALE
     Dosage: 820MG, NO OF CYCLES: 03, FREQUENCY: EVERY THREE WEEKS
     Route: 065
  4. EPIRUBICIN [Concomitant]
     Active Substance: EPIRUBICIN
     Indication: BREAST CANCER FEMALE
     Dosage: 164MG, NO OF CYCLES: 03, FREQUENCY: EVERY THREE WEEKS
     Route: 065

REACTIONS (1)
  - Alopecia [Not Recovered/Not Resolved]

NARRATIVE: CASE EVENT DATE: 201401
